FAERS Safety Report 5134140-9 (Version None)
Quarter: 2006Q4

REPORT INFORMATION
  Report Type: 
  Country: None (occurrence: None)
  Receive Date: 20061024
  Receipt Date: 20060717
  Transmission Date: 20070319
  Serious: Yes (Hospitalization)
  Sender: FDA-Public Use
  Company Number: 2006CG01233

PATIENT
  Age: 68 Year
  Sex: Male

DRUGS (6)
  1. OMEPRAZOLE [Suspect]
     Route: 048
  2. CORTANCYL [Suspect]
     Route: 048
     Dates: end: 20060623
  3. SPECIAFOLDINE [Suspect]
     Route: 048
  4. LASIX [Suspect]
     Route: 048
     Dates: end: 20060621
  5. VOLTARENE LP 75 [Suspect]
     Route: 048
     Dates: end: 20060621
  6. NOVATREX [Suspect]
     Route: 048
     Dates: start: 20060501, end: 20060622

REACTIONS (2)
  - ALVEOLITIS [None]
  - INTERSTITIAL LUNG DISEASE [None]
